FAERS Safety Report 20187219 (Version 7)
Quarter: 2023Q1

REPORT INFORMATION
  Report Type: Report from Study
  Country: BE (occurrence: None)
  Receive Date: 20211215
  Receipt Date: 20230224
  Transmission Date: 20230417
  Serious: Yes (Hospitalization)
  Sender: FDA-Public Use
  Company Number: BE-ROCHE-2972059

PATIENT
  Age: 51 Year
  Sex: Male
  Weight: 71 kg

DRUGS (34)
  1. OCRELIZUMAB [Suspect]
     Active Substance: OCRELIZUMAB
     Indication: Relapsing-remitting multiple sclerosis
     Dosage: 17/JAN/2013, 20/JUN/2013, 05/DEC/2013, 23/MAY/2014
     Route: 042
     Dates: start: 20130104, end: 20130104
  2. OCRELIZUMAB [Suspect]
     Active Substance: OCRELIZUMAB
     Route: 042
     Dates: start: 20130117, end: 20130117
  3. OCRELIZUMAB [Suspect]
     Active Substance: OCRELIZUMAB
     Route: 042
     Dates: start: 20130620, end: 20130620
  4. OCRELIZUMAB [Suspect]
     Active Substance: OCRELIZUMAB
     Route: 042
     Dates: start: 20131205, end: 20131205
  5. OCRELIZUMAB [Suspect]
     Active Substance: OCRELIZUMAB
     Route: 042
     Dates: start: 20140522, end: 20140522
  6. PLACEBO [Suspect]
     Active Substance: UNSPECIFIED INGREDIENT
     Indication: Relapsing-remitting multiple sclerosis
     Route: 058
  7. PLACEBO [Suspect]
     Active Substance: UNSPECIFIED INGREDIENT
     Route: 058
     Dates: start: 20141104, end: 20141204
  8. OCRELIZUMAB [Suspect]
     Active Substance: OCRELIZUMAB
     Indication: Relapsing-remitting multiple sclerosis
     Dosage: WEEK:0
     Route: 042
     Dates: start: 20141204, end: 20141204
  9. OCRELIZUMAB [Suspect]
     Active Substance: OCRELIZUMAB
     Dosage: WEEK:2
     Route: 042
     Dates: start: 20141218, end: 20141218
  10. OCRELIZUMAB [Suspect]
     Active Substance: OCRELIZUMAB
     Dosage: SUBSEQUENT DOSE: 10/NOV/2015 (WEEK:48) ,  25/APR/2016 (WEEK:72), 06/OCT/2016, 23/APR/2017,07/SEP/201
     Route: 042
     Dates: start: 20150526, end: 20150526
  11. DAFALGAN [Concomitant]
     Active Substance: ACETAMINOPHEN
     Dosage: 17/JAN/2013, 20/JUN/2013, 05/DEC/2013, 22/MAY/2014, 04/DEC/20214, 18/DEC/2014, 26/MAY/2015, 10/NOV/2
     Dates: start: 20130104
  12. ZYRTEC (BELGIUM) [Concomitant]
     Dosage: 17/JAN/2013, 20/JUN/2013, 05/DEC/2013, 22/MAY/2014, 04/DEC/20214, 18/DEC/2014, 26/MAY/2015, 10/NOV/2
     Dates: start: 20130104
  13. METHYLPREDNISOLONE [Concomitant]
     Active Substance: METHYLPREDNISOLONE
     Dosage: 17/JAN/2013, 20/JUN/2013, 05/DEC/2013, 22/MAY/2014, 04/DEC/20214, 18/DEC/2014, 26/MAY/2015, 10/NOV/2
     Dates: start: 20130104
  14. ACETAMINOPHEN [Concomitant]
     Active Substance: ACETAMINOPHEN
     Dates: start: 20150526
  15. POLYETHYLENE GLYCOLS [Concomitant]
     Active Substance: POLYETHYLENE GLYCOLS
     Indication: Haemorrhoids
     Dates: start: 20211019
  16. POLYETHYLENE GLYCOLS [Concomitant]
     Active Substance: POLYETHYLENE GLYCOLS
     Dates: start: 20220110
  17. POLYETHYLENE GLYCOLS [Concomitant]
     Active Substance: POLYETHYLENE GLYCOLS
     Dates: start: 20211215, end: 20220109
  18. PANTOPRAZOLE [Concomitant]
     Active Substance: PANTOPRAZOLE
     Indication: Haemorrhoids
     Dates: start: 20211019
  19. DAFLON [Concomitant]
     Indication: Haemorrhoids
     Dates: start: 20211028
  20. BILASTINE [Concomitant]
     Active Substance: BILASTINE
     Indication: Seasonal allergy
     Dates: start: 20200413
  21. NASONEX [Concomitant]
     Active Substance: MOMETASONE FUROATE
     Indication: Seasonal allergy
     Dates: start: 20200413
  22. NASONEX [Concomitant]
     Active Substance: MOMETASONE FUROATE
     Indication: Viral upper respiratory tract infection
     Dates: start: 20150323, end: 20150326
  23. CHOLECALCIFEROL [Concomitant]
     Active Substance: CHOLECALCIFEROL
     Indication: Vitamin D deficiency
     Dates: start: 20211130
  24. AMOXICILLIN [Concomitant]
     Active Substance: AMOXICILLIN
     Dates: start: 20220104, end: 20220110
  25. FLUCONAZOLE [Concomitant]
     Active Substance: FLUCONAZOLE
     Dates: start: 20220106, end: 20220106
  26. PAXLOVID [Concomitant]
     Active Substance: NIRMATRELVIR\RITONAVIR
  27. NIFUROXAZIDE [Concomitant]
     Active Substance: NIFUROXAZIDE
  28. PROTECTIS [Concomitant]
  29. BUTYLSCOPOLAMINE BROMIDE [Concomitant]
     Active Substance: BUTYLSCOPOLAMINE BROMIDE
  30. OTILONIUM BROMIDE [Concomitant]
     Active Substance: OTILONIUM BROMIDE
  31. FLAGYL [Concomitant]
     Active Substance: METRONIDAZOLE\METRONIDAZOLE HYDROCHLORIDE
  32. BUTYLSCOPOLAMINE [Concomitant]
     Active Substance: BUTYLSCOPOLAMINE
  33. MEBEVERINE [Concomitant]
     Active Substance: MEBEVERINE
  34. SULPIRIDE [Concomitant]
     Active Substance: SULPIRIDE

REACTIONS (1)
  - COVID-19 pneumonia [Recovered/Resolved]

NARRATIVE: CASE EVENT DATE: 20211116
